FAERS Safety Report 9664151 (Version 3)
Quarter: 2014Q1

REPORT INFORMATION
  Report Type: Report from Study
  Country: BE (occurrence: BE)
  Receive Date: 20131101
  Receipt Date: 20140228
  Transmission Date: 20141002
  Serious: Yes (Hospitalization)
  Sender: FDA-Public Use
  Company Number: BE-VERTEX PHARMACEUTICALS INC-2013-010785

PATIENT
  Age: 46 Year
  Sex: Male
  Weight: 95 kg

DRUGS (6)
  1. TELAPREVIR [Suspect]
     Indication: HEPATITIS C
     Dosage: 2250 MG, QD
     Route: 048
     Dates: start: 20130923
  2. PEGINTERFERON ALFA [Suspect]
     Indication: PRODUCT USED FOR UNKNOWN INDICATION
     Dosage: DOSAGE FORM: UNSPECIFIED
     Route: 058
     Dates: start: 20130923, end: 20131009
  3. RIBAVIRIN [Suspect]
     Indication: PRODUCT USED FOR UNKNOWN INDICATION
     Dosage: DOSAGE FORM: UNSPECIFIED
     Route: 048
     Dates: start: 20130923, end: 20131009
  4. EUSAPRIM [Concomitant]
     Indication: BRONCHITIS
     Dates: start: 20131007, end: 20131013
  5. CORTICOSTEROID NOS [Concomitant]
     Indication: RASH
     Dates: start: 20131007, end: 20131013
  6. METHADONE [Concomitant]
     Indication: ELECTROLYTE SUBSTITUTION THERAPY
     Dosage: UNK

REACTIONS (1)
  - Mental disorder [Recovered/Resolved]
